FAERS Safety Report 6819758-7 (Version None)
Quarter: 2010Q3

REPORT INFORMATION
  Report Type: 
  Country: None (occurrence: None)
  Receive Date: 20100707
  Receipt Date: 20100615
  Transmission Date: 20110219
  Serious: Yes (Hospitalization)
  Sender: FDA-Public Use
  Company Number: PHHY2010AU04318

PATIENT
  Sex: Male

DRUGS (1)
  1. CLOZARIL [Suspect]
     Dosage: 950 MG, UNK
     Route: 048
     Dates: start: 20040721

REACTIONS (5)
  - AGGRESSION [None]
  - DRUG DOSE OMISSION [None]
  - IRRITABILITY [None]
  - MENTAL DISORDER [None]
  - PSYCHOTIC DISORDER [None]
